FAERS Safety Report 8042318 (Version 4)
Quarter: 2013Q3

REPORT INFORMATION
  Report Type: Spontaneous
  Country: US (occurrence: US)
  Receive Date: 20110718
  Receipt Date: 20130809
  Transmission Date: 20140515
  Serious: Yes (Hospitalization, Other)
  Sender: FDA-Public Use
  Company Number: US-ROCHE-790286

PATIENT
  Age: 21 Year
  Sex: Male
  Weight: 79.45 kg

DRUGS (2)
  1. ACCUTANE [Suspect]
     Indication: ACNE
     Route: 065
     Dates: start: 199508, end: 199603
  2. ACCUTANE [Suspect]
     Route: 065

REACTIONS (6)
  - Colitis ulcerative [Unknown]
  - Injury [Unknown]
  - Depression [Unknown]
  - Irritable bowel syndrome [Unknown]
  - Influenza [Unknown]
  - Aspartate aminotransferase increased [Unknown]
